FAERS Safety Report 19797494 (Version 2)
Quarter: 2022Q3

REPORT INFORMATION
  Report Type: Spontaneous
  Country: US (occurrence: US)
  Receive Date: 20210907
  Receipt Date: 20220930
  Transmission Date: 20221026
  Serious: Yes (Hospitalization, Other)
  Sender: FDA-Public Use
  Company Number: US-MLMSERVICE-20210823-3058461-1

PATIENT
  Age: 35 Year
  Sex: Female

DRUGS (2)
  1. TRIAMCINOLONE ACETONIDE [Suspect]
     Active Substance: TRIAMCINOLONE ACETONIDE
     Indication: Maculopathy
     Dosage: 4 MILLIGRAM (INTRAVITREAL EVERY 3?4 MONTHS)
     Route: 031
  2. TRIAMCINOLONE ACETONIDE [Suspect]
     Active Substance: TRIAMCINOLONE ACETONIDE
     Indication: Retinal neovascularisation

REACTIONS (2)
  - Glaucoma [Recovering/Resolving]
  - Cataract [Recovering/Resolving]
